FAERS Safety Report 8494147-0 (Version None)
Quarter: 2012Q3

REPORT INFORMATION
  Report Type: 
  Country: None (occurrence: None)
  Receive Date: 20120702
  Receipt Date: 20120702
  Transmission Date: 20120928
  Serious: No
  Sender: FDA-Public Use
  Company Number: None

PATIENT
  Age: 65 Year
  Sex: 0
  Weight: 49.8957 kg

DRUGS (1)
  1. LISINOPRIL [Suspect]
     Indication: HYPERTENSIVE CARDIOMYOPATHY
     Dosage: 10 MG EVERY DAY PO
     Route: 048
     Dates: start: 20120510, end: 20120607

REACTIONS (2)
  - WHEEZING [None]
  - COUGH [None]
